FAERS Safety Report 9645753 (Version 2)
Quarter: 2014Q1

REPORT INFORMATION
  Report Type: Spontaneous
  Country: US (occurrence: None)
  Receive Date: 20131023
  Receipt Date: 20140212
  Transmission Date: 20141002
  Serious: Yes (Other)
  Sender: FDA-Public Use
  Company Number: 2013-US-001973

PATIENT
  Age: 31 Year
  Sex: Male
  Weight: 86.2 kg

DRUGS (3)
  1. XYREM (SODIUM OXYBATE) ORAL SOLUTION, 500MG/ML [Suspect]
     Indication: NARCOLEPSY
     Route: 048
     Dates: start: 200312
  2. XYREM (SODIUM OXYBATE) ORAL SOLUTION, 500MG/ML [Suspect]
     Indication: SOMNOLENCE
     Route: 048
     Dates: start: 200312
  3. ADDERALL (AMFETAMINE ASPARTATE, AMFETAMINE SULFATE, DEXAMFETAMINE SACCHARATE, DEXAMFETAMINE SULFATE) [Concomitant]

REACTIONS (9)
  - Hypothalamo-pituitary disorder [None]
  - Autoimmune disorder [None]
  - Viral infection [None]
  - Limb injury [None]
  - Intentional drug misuse [None]
  - Anxiety [None]
  - Limb injury [None]
  - Middle insomnia [None]
  - Haemorrhage [None]
